FAERS Safety Report 9783101 (Version 1)
Quarter: 2013Q4

REPORT INFORMATION
  Report Type: Spontaneous
  Country: EG (occurrence: None)
  Receive Date: 20131213
  Receipt Date: 20131213
  Transmission Date: 20140711
  Serious: Yes (Other)
  Sender: FDA-Public Use
  Company Number: AEEGY201300435

PATIENT
  Age: 48 Year
  Sex: Male

DRUGS (4)
  1. KOATE-DVI [Suspect]
     Indication: FACTOR VIII DEFICIENCY
     Route: 042
  2. KOGENATE FS [Suspect]
     Indication: FACTOR VIII DEFICIENCY
  3. CORTICOSTEROIDS [Concomitant]
  4. ANTIHISTAMINES [Concomitant]

REACTIONS (4)
  - Hypertension [None]
  - Tachycardia [None]
  - Tachypnoea [None]
  - Dyspnoea [None]
